FAERS Safety Report 4694161-7 (Version None)
Quarter: 2005Q2

REPORT INFORMATION
  Report Type: 
  Country: None (occurrence: None)
  Receive Date: 20050617
  Receipt Date: 20050617
  Transmission Date: 20051028
  Serious: Yes (Death)
  Sender: FDA-Public Use
  Company Number: None

PATIENT
  Sex: Male
  Weight: 61.8 kg

DRUGS (3)
  1. INFLIXIMAB [Suspect]
     Indication: NON-SMALL CELL LUNG CANCER
     Dosage: 5 MG/KG/DAY.  DAY 1 OF WEEKS 1, 3, 5, FOR THE FIRST EIGHT WEEK CYCLE.  DAY 1 OF WEEKS 1 AND 5 OF EAC
     Dates: start: 20050519
  2. PLACEBO [Suspect]
  3. DOCETAXEL [Suspect]
     Dosage: 36 MG/M2/DAY. EVERY 7 DASY FOR SIX WEEKS WITH WEEKS 7 + 8 OFF FOR ALL CYCLES.

REACTIONS (9)
  - DIZZINESS [None]
  - DYSPNOEA [None]
  - HAEMOGLOBIN DECREASED [None]
  - HAEMOPTYSIS [None]
  - HEART RATE IRREGULAR [None]
  - HYPOTENSION [None]
  - INTERSTITIAL LUNG DISEASE [None]
  - LUNG INFILTRATION [None]
  - OXYGEN SATURATION DECREASED [None]
